FAERS Safety Report 15222019 (Version 1)
Quarter: 2018Q3

REPORT INFORMATION
  Report Type: Spontaneous
  Country: CA (occurrence: CA)
  Receive Date: 20180731
  Receipt Date: 20180731
  Transmission Date: 20181010
  Serious: Yes (Other)
  Sender: FDA-Public Use
  Company Number: CA-PURDUE PHARMA-CAN-2018-0008895

PATIENT
  Sex: Male
  Weight: 47 kg

DRUGS (3)
  1. BIPHENTIN [Suspect]
     Active Substance: METHYLPHENIDATE
     Dosage: 50 MG, DAILY
     Route: 065
  2. BIPHENTIN [Suspect]
     Active Substance: METHYLPHENIDATE
     Indication: ATTENTION DEFICIT/HYPERACTIVITY DISORDER
     Dosage: 50 MG, TID
     Route: 065
  3. MELATONIN [Concomitant]
     Active Substance: MELATONIN
     Indication: PRODUCT USED FOR UNKNOWN INDICATION
     Dosage: UNK
     Route: 065

REACTIONS (8)
  - Tic [Unknown]
  - Off label use [Unknown]
  - Hyperacusis [Unknown]
  - Agitation [Unknown]
  - Middle insomnia [Unknown]
  - Abdominal pain [Unknown]
  - Overweight [Unknown]
  - Fatigue [Unknown]
